FAERS Safety Report 6984146 (Version 3)
Quarter: 2014Q1

REPORT INFORMATION
  Report Type: Spontaneous
  Country: US (occurrence: US)
  Receive Date: 20090501
  Receipt Date: 20140310
  Transmission Date: 20141002
  Serious: Yes (Death, Life-Threatening, Hospitalization, Other)
  Sender: FDA-Public Use
  Company Number: US-ALEXION-A200700057

PATIENT
  Age: 52 Year
  Sex: Male

DRUGS (32)
  1. SOLIRIS [Suspect]
     Indication: PAROXYSMAL NOCTURNAL HAEMOGLOBINURIA
     Dosage: 600 MG, SINGLE
     Route: 042
     Dates: start: 20070821, end: 20070821
  2. SOLIRIS [Suspect]
     Dosage: 600 MG, SINGLE
     Route: 042
     Dates: start: 20070828, end: 20070828
  3. SOLIRIS [Suspect]
     Dosage: 600 MG, SINGLE
     Route: 042
     Dates: start: 20070904, end: 20070904
  4. SOLIRIS [Suspect]
     Dosage: 600 MG, SINGLE
     Route: 042
     Dates: start: 20070913, end: 20070913
  5. SOLIRIS [Suspect]
     Dosage: 600 MG, SINGLE
     Route: 042
     Dates: start: 20070924, end: 20070924
  6. SOLIRIS [Suspect]
     Dosage: 900 MG, SINGLE
     Route: 042
     Dates: start: 20071004, end: 20071004
  7. SOLIRIS [Suspect]
     Dosage: 900 MG, SINGLE
     Route: 042
     Dates: start: 20071018, end: 20071018
  8. SOLIRIS [Suspect]
     Dosage: 900 MG, SINGLE
     Route: 042
     Dates: start: 20071101, end: 20071101
  9. SOLIRIS [Suspect]
     Dosage: 900 MG, SINGLE
     Route: 042
     Dates: start: 20071116, end: 20071116
  10. SOLIRIS [Suspect]
     Dosage: 900 MG, SINGLE
     Route: 042
     Dates: start: 20071130, end: 20071130
  11. SOLIRIS [Suspect]
     Dosage: 900 MG, SINGLE
     Route: 042
     Dates: start: 20071214, end: 20071214
  12. SOLIRIS [Suspect]
     Dosage: 900 MG, SINGLE
     Route: 042
     Dates: start: 20071228, end: 20071228
  13. SOLIRIS [Suspect]
     Dosage: 900 MG, SINGLE
     Route: 042
     Dates: start: 20080111, end: 20080111
  14. SOLIRIS [Suspect]
     Dosage: 900 MG, SINGLE
     Route: 042
     Dates: start: 20080125, end: 20080125
  15. SOLIRIS [Suspect]
     Dosage: 900 MG, SINGLE
     Route: 042
     Dates: start: 20080208, end: 20080208
  16. SOLIRIS [Suspect]
     Dosage: 900 MG, SINGLE
     Route: 042
     Dates: start: 20080222, end: 20080222
  17. SOLIRIS [Suspect]
     Dosage: 900 MG, SINGLE
     Route: 042
     Dates: start: 20080311, end: 20080311
  18. SOLIRIS [Suspect]
     Dosage: 600 MG, SINGLE
     Route: 042
     Dates: start: 20080524, end: 20080524
  19. SOLIRIS [Suspect]
     Dosage: 600 MG, SINGLE
     Route: 042
     Dates: start: 20080531, end: 20080531
  20. SOLIRIS [Suspect]
     Dosage: 600 MG, SINGLE
     Route: 042
     Dates: start: 20080607, end: 20080607
  21. PREDNISONE [Concomitant]
     Dosage: 20 MG, QOD
     Route: 048
  22. PREDNISONE [Concomitant]
     Dosage: 5 MG, QOD
     Route: 048
  23. ULTRAM [Concomitant]
     Dosage: UNK, QD
     Route: 048
  24. CYMBALTA [Concomitant]
     Dosage: UNK, QD
     Route: 048
  25. WELCHOL [Concomitant]
     Dosage: UNK, QD
     Route: 048
  26. COUMADIN [Concomitant]
     Indication: PROPHYLAXIS
     Dosage: UNK, QD
     Route: 048
  27. TOPROL [Concomitant]
     Dosage: UNK, QD
     Route: 048
  28. FOLIC ACID [Concomitant]
     Dosage: UNK, QD
     Route: 048
  29. IRON [Concomitant]
     Dosage: UNK, QD
     Route: 048
  30. CRESTOR                            /01588601/ [Concomitant]
     Dosage: UNK, QD
     Route: 048
  31. PROTONIX                           /01263201/ [Concomitant]
     Dosage: UNK, QD
     Route: 048
  32. NEXIUM [Concomitant]

REACTIONS (27)
  - Multi-organ failure [Fatal]
  - Cardiac arrest [Unknown]
  - Disseminated intravascular coagulation [Unknown]
  - Staphylococcal infection [Unknown]
  - Haemolysis [Not Recovered/Not Resolved]
  - Pancreatitis [Unknown]
  - Cholelithiasis [Unknown]
  - Bone marrow failure [Unknown]
  - Sepsis [Unknown]
  - Anaemia [Recovering/Resolving]
  - Blood bilirubin increased [Recovering/Resolving]
  - Muscular weakness [Not Recovered/Not Resolved]
  - Semen analysis abnormal [Not Recovered/Not Resolved]
  - Dysphagia [Recovered/Resolved]
  - Night sweats [Not Recovered/Not Resolved]
  - Restless legs syndrome [Recovering/Resolving]
  - Insomnia [Recovering/Resolving]
  - Pain in extremity [Not Recovered/Not Resolved]
  - Pain [Not Recovered/Not Resolved]
  - Influenza like illness [Unknown]
  - Pyrexia [Recovered/Resolved]
  - Headache [Unknown]
  - Haematuria [Unknown]
  - Abdominal pain [Unknown]
  - Back pain [Unknown]
  - Jaundice [Recovered/Resolved]
  - Fatigue [Unknown]
